FAERS Safety Report 8083890-3 (Version None)
Quarter: 2012Q1

REPORT INFORMATION
  Report Type: 
  Country: None (occurrence: None)
  Receive Date: 20120128
  Receipt Date: 20110111
  Transmission Date: 20120608
  Serious: No
  Sender: FDA-Public Use
  Company Number: US-ABBOTT-11P-163-0697100-00

PATIENT
  Sex: Male
  Weight: 97.61 kg

DRUGS (7)
  1. MULTI-VITAMIN [Concomitant]
     Indication: VITAMIN SUPPLEMENTATION
  2. FISH OIL [Concomitant]
     Indication: SUPPLEMENTATION THERAPY
  3. FLONASE [Concomitant]
     Indication: HYPERSENSITIVITY
     Route: 045
  4. ASTELIN [Concomitant]
     Indication: HYPERSENSITIVITY
     Route: 045
  5. ASPIRIN [Concomitant]
     Indication: DRUG THERAPY
  6. PRAVASTATIN [Concomitant]
     Indication: BLOOD CHOLESTEROL INCREASED
  7. HUMIRA [Suspect]
     Indication: ANKYLOSING SPONDYLITIS
     Dates: start: 20070101

REACTIONS (2)
  - PERIPHERAL COLDNESS [None]
  - HYPOAESTHESIA [None]
